FAERS Safety Report 5528334-8 (Version None)
Quarter: 2007Q4

REPORT INFORMATION
  Report Type: 
  Country: None (occurrence: None)
  Receive Date: 20071128
  Receipt Date: 20071121
  Transmission Date: 20080405
  Serious: Yes (Other)
  Sender: FDA-Public Use
  Company Number: GB-PFIZER INC-2007098177

PATIENT
  Sex: Male

DRUGS (1)
  1. LIPITOR [Suspect]
     Route: 048

REACTIONS (2)
  - BALANCE DISORDER [None]
  - PARKINSONISM [None]
